FAERS Safety Report 4389510-3 (Version None)
Quarter: 2004Q3

REPORT INFORMATION
  Report Type: 
  Country: None (occurrence: None)
  Receive Date: 20040702
  Receipt Date: 20040621
  Transmission Date: 20050211
  Serious: Yes (Death)
  Sender: FDA-Public Use
  Company Number: JP-GLAXOSMITHKLINE-B0336491A

PATIENT
  Sex: Female

DRUGS (3)
  1. PAXIL [Suspect]
     Dosage: 40MG PER DAY
     Route: 048
  2. ANAFRANIL [Suspect]
     Dosage: 150MG PER DAY
     Route: 065
  3. ROHYPNOL [Suspect]
     Route: 065

REACTIONS (1)
  - SUDDEN DEATH [None]
